FAERS Safety Report 8321669 (Version 3)
Quarter: 2013Q1

REPORT INFORMATION
  Report Type: Spontaneous
  Country: US (occurrence: US)
  Receive Date: 20120104
  Receipt Date: 20130325
  Transmission Date: 20140127
  Serious: Yes (Other)
  Sender: FDA-Public Use
  Company Number: US-ASTRAZENECA-2011SE76757

PATIENT
  Age: 51 Year
  Sex: Male

DRUGS (4)
  1. NEXIUM [Suspect]
     Indication: GASTRIC DISORDER
     Route: 048
  2. NEXIUM [Suspect]
     Indication: GASTROOESOPHAGEAL REFLUX DISEASE
     Route: 048
  3. PREVACID [Suspect]
     Route: 065
  4. OXYCODONE [Concomitant]

REACTIONS (14)
  - Wrist fracture [Unknown]
  - Fall [Unknown]
  - Hand fracture [Unknown]
  - Gastrooesophageal reflux disease [Unknown]
  - Limb injury [Unknown]
  - Pain [Unknown]
  - Gastric disorder [Unknown]
  - Sleep disorder due to general medical condition, hypersomnia type [Unknown]
  - Macular degeneration [Unknown]
  - Nasopharyngitis [Unknown]
  - Malaise [Unknown]
  - Diarrhoea [Unknown]
  - Arthralgia [Unknown]
  - Drug dose omission [Unknown]
